FAERS Safety Report 23985839 (Version 1)
Quarter: 2024Q2

REPORT INFORMATION
  Report Type: Spontaneous
  Country: RU (occurrence: RU)
  Receive Date: 20240618
  Receipt Date: 20240618
  Transmission Date: 20240716
  Serious: Yes (Other)
  Sender: FDA-Public Use
  Company Number: RU-TEVA-VS-3209824

PATIENT
  Sex: Female

DRUGS (1)
  1. GABAPENTIN [Suspect]
     Active Substance: GABAPENTIN
     Indication: Pain
     Dosage: BATCH#: 3741023?EXP. DATE: 31 OCT 2025?PACKAGING: 50 CAPS?DOSAGE: 0.3 G?FREQUENCY: 1 TIME BEFORE ...
     Route: 065

REACTIONS (3)
  - Mental impairment [Unknown]
  - Somnolence [Unknown]
  - Gait disturbance [Unknown]
